FAERS Safety Report 4681750-9 (Version None)
Quarter: 2005Q2

REPORT INFORMATION
  Report Type: 
  Country: None (occurrence: None)
  Receive Date: 20050603
  Receipt Date: 20050527
  Transmission Date: 20051028
  Serious: Yes (Hospitalization)
  Sender: FDA-Public Use
  Company Number: US-MERCK-0505USA03417

PATIENT
  Sex: Male

DRUGS (2)
  1. VIOXX [Suspect]
     Indication: ARTHRALGIA
     Route: 048
     Dates: start: 20030827, end: 20040301
  2. VIOXX [Suspect]
     Route: 048
     Dates: start: 20030827, end: 20040301

REACTIONS (7)
  - ARTHROPATHY [None]
  - CARDIAC DISORDER [None]
  - CORONARY ARTERY SURGERY [None]
  - GANGRENE [None]
  - MYOCARDIAL INFARCTION [None]
  - PARALYSIS [None]
  - PERIPHERAL VASCULAR DISORDER [None]
